FAERS Safety Report 8481509-0 (Version None)
Quarter: 2012Q3

REPORT INFORMATION
  Report Type: 
  Country: None (occurrence: None)
  Receive Date: 20120702
  Receipt Date: 20120619
  Transmission Date: 20120928
  Serious: Yes (Other)
  Sender: FDA-Public Use
  Company Number: US-VERTEX PHARMACEUTICALS INC.-AE-2012-009285

PATIENT
  Sex: Female

DRUGS (3)
  1. PEGASYS [Concomitant]
     Indication: HEPATITIS C
     Dates: start: 20120301
  2. RIBASPHERE [Concomitant]
     Indication: HEPATITIS C
     Dates: start: 20120301
  3. INCIVEK [Suspect]
     Indication: HEPATITIS C
     Route: 048
     Dates: start: 20120301

REACTIONS (3)
  - SEPSIS [None]
  - BLOOD SODIUM DECREASED [None]
  - ANAEMIA [None]
